FAERS Safety Report 6177029-9 (Version None)
Quarter: 2009Q2

REPORT INFORMATION
  Report Type: 
  Country: None (occurrence: None)
  Receive Date: 20090501
  Receipt Date: 20090417
  Transmission Date: 20091009
  Serious: Yes (Death, Disabling)
  Sender: FDA-Public Use
  Company Number: GB-GENENTECH-261975

PATIENT
  Sex: Female

DRUGS (7)
  1. BEVACIZUMAB [Suspect]
     Indication: COLON CANCER
     Dosage: 350 MG, Q3W
     Route: 042
     Dates: start: 20050803
  2. CAPECITABINE [Suspect]
     Indication: COLON CANCER
     Dosage: 1500 MG, BID/D1-14/Q3W
     Route: 048
     Dates: start: 20050803
  3. CAPECITABINE [Suspect]
     Dosage: 800 MG, BID
     Dates: start: 20050928
  4. OXALIPLATIN [Suspect]
     Indication: COLON CANCER
     Dosage: 190 MG, Q3W
     Route: 042
     Dates: start: 20050803
  5. OXALIPLATIN [Suspect]
     Dosage: 140 MG, UNK
     Dates: start: 20050928
  6. ACETAMINOPHEN W/ CODEINE [Concomitant]
     Indication: DRUG USE FOR UNKNOWN INDICATION
  7. DICLOFENAC [Concomitant]
     Indication: DRUG USE FOR UNKNOWN INDICATION

REACTIONS (2)
  - DIARRHOEA [None]
  - PERIPHERAL SENSORY NEUROPATHY [None]
